FAERS Safety Report 4902203-6 (Version None)
Quarter: 2006Q1

REPORT INFORMATION
  Report Type: 
  Country: None (occurrence: None)
  Receive Date: 20060207
  Receipt Date: 20060124
  Transmission Date: 20060701
  Serious: Yes (Hospitalization)
  Sender: FDA-Public Use
  Company Number: US-ROCHE-433603

PATIENT
  Age: 48 Year
  Sex: Male

DRUGS (7)
  1. PEGASYS [Suspect]
     Dosage: ROUTE REPORTED AS INJECTABLE
     Route: 050
     Dates: start: 20040715
  2. PEGASYS [Suspect]
     Route: 050
     Dates: start: 20041215, end: 20050215
  3. COPEGUS [Suspect]
     Route: 048
     Dates: start: 20040715
  4. COPEGUS [Suspect]
     Route: 048
     Dates: start: 20041215, end: 20050215
  5. WELLBUTRIN [Concomitant]
     Indication: DEPRESSION
     Route: 048
  6. PAXIL [Concomitant]
     Indication: DEPRESSION
     Route: 048
  7. MORPHINE [Concomitant]
     Indication: BACK PAIN

REACTIONS (6)
  - DEPRESSION [None]
  - HAEMOGLOBIN DECREASED [None]
  - INFECTION [None]
  - NEUTROPHIL COUNT DECREASED [None]
  - RED BLOOD CELL COUNT DECREASED [None]
  - WHITE BLOOD CELL COUNT DECREASED [None]
